FAERS Safety Report 16450630 (Version 4)
Quarter: 2020Q3

REPORT INFORMATION
  Report Type: Report from Study
  Country: US (occurrence: US)
  Receive Date: 20190619
  Receipt Date: 20190930
  Transmission Date: 20201104
  Serious: Yes (Hospitalization, Other)
  Sender: FDA-Public Use
  Company Number: US-MYLANLABS-2019M1056828

PATIENT
  Age: 56 Year
  Sex: Male
  Weight: 51.6 kg

DRUGS (15)
  1. TALAZOPARIB. [Suspect]
     Active Substance: TALAZOPARIB
     Dosage: 1 MILLIGRAM, QD
     Route: 048
     Dates: start: 20190503, end: 20190514
  2. XGEVA [Concomitant]
     Active Substance: DENOSUMAB
     Indication: PROPHYLAXIS
     Dosage: UNK
  3. PREDNISONE. [Suspect]
     Active Substance: PREDNISONE
     Dosage: 5 MILLIGRAM, BID
     Route: 048
     Dates: start: 20190521, end: 20190523
  4. AVELUMAB [Suspect]
     Active Substance: AVELUMAB
     Indication: PANCREATIC CARCINOMA
     Dosage: 800 MILLIGRAM, OVER 60 MINUTES
     Dates: start: 20190429, end: 20190504
  5. ONDANSETRON [Concomitant]
     Active Substance: ONDANSETRON
     Dosage: UNK
     Dates: start: 20180205
  6. PREDNISONE. [Suspect]
     Active Substance: PREDNISONE
     Dosage: TAPER 15 MILLIGRAM, TID
     Route: 048
     Dates: start: 20190518, end: 20190520
  7. AVELUMAB [Suspect]
     Active Substance: AVELUMAB
     Dosage: 800 MILLIGRAM, OVER 60 MINUTES, ONCE
     Route: 042
     Dates: start: 20190503, end: 20190505
  8. TALAZOPARIB. [Suspect]
     Active Substance: TALAZOPARIB
     Indication: PANCREATIC CARCINOMA
     Dosage: 1 MILLIGRAM, QD
     Route: 048
     Dates: start: 20190429, end: 20190514
  9. PREVACID [Concomitant]
     Active Substance: LANSOPRAZOLE
     Dosage: UNK
     Dates: start: 20181221
  10. PREDNISONE. [Suspect]
     Active Substance: PREDNISONE
     Indication: CANCER HORMONAL THERAPY
     Dosage: 1 DOSAGE FORM, QD
     Route: 048
     Dates: start: 20170615, end: 20190517
  11. LUPRON [Concomitant]
     Active Substance: LEUPROLIDE ACETATE
     Indication: ANDROGENS DECREASED
     Dosage: UNK
  12. CALCIUM CARBONATE AND VITAMIN D [Concomitant]
     Active Substance: CALCIUM CARBONATE\VITAMIN D
     Dosage: UNK
  13. OXYCODONE [Concomitant]
     Active Substance: OXYCODONE
     Indication: PAIN MANAGEMENT
     Dosage: UNK
  14. MAGNESIUM OXIDE. [Concomitant]
     Active Substance: MAGNESIUM OXIDE
     Dosage: UNK
     Dates: start: 20190322
  15. MORPHINE [Concomitant]
     Active Substance: MORPHINE
     Indication: PAIN MANAGEMENT
     Dosage: UNK

REACTIONS (6)
  - Blood alkaline phosphatase increased [Recovered/Resolved]
  - Hypotension [Recovered/Resolved]
  - Aspartate aminotransferase increased [Recovered/Resolved]
  - Alanine aminotransferase increased [Recovered/Resolved]
  - Thrombocytopenia [Recovered/Resolved]
  - Neutrophil count decreased [Recovered/Resolved]

NARRATIVE: CASE EVENT DATE: 20190515
